FAERS Safety Report 25165913 (Version 2)
Quarter: 2025Q2

REPORT INFORMATION
  Report Type: Spontaneous
  Country: HU (occurrence: HU)
  Receive Date: 20250407
  Receipt Date: 20250418
  Transmission Date: 20250717
  Serious: Yes (Hospitalization, Other)
  Sender: BRISTOL-MYERS SQUIBB COMPANY
  Company Number: HU-KRKA-HU2025K05054LIT

PATIENT
  Age: 70 Year
  Sex: Female

DRUGS (9)
  1. LENALIDOMIDE [Suspect]
     Active Substance: LENALIDOMIDE
     Indication: Plasmacytoma
     Dosage: 25 MG, PER DAY, CYCLE 134
     Dates: start: 20121010
  2. LENALIDOMIDE [Suspect]
     Active Substance: LENALIDOMIDE
     Indication: Plasma cell myeloma
     Dosage: 15 MG, PER DAY,AT CYCLE 50
  3. LENALIDOMIDE [Suspect]
     Active Substance: LENALIDOMIDE
     Dosage: 10 MG, PER DAY,AT CYCLE 58
  4. DEXAMETHASONE [Suspect]
     Active Substance: DEXAMETHASONE
     Indication: Plasmacytoma
     Dosage: 40 MG, PER WEEK
     Dates: start: 20121010
  5. DEXAMETHASONE [Suspect]
     Active Substance: DEXAMETHASONE
     Indication: Plasma cell myeloma
  6. CHOLECALCIFEROL [Suspect]
     Active Substance: CHOLECALCIFEROL
     Indication: Supplementation therapy
  7. ZOLEDRONIC ACID [Suspect]
     Active Substance: ZOLEDRONIC ACID
     Indication: Prophylaxis
     Dosage: 4 MG, PER MONTH
     Route: 041
  8. CALCIUM [Suspect]
     Active Substance: CALCIUM
     Indication: Supplementation therapy
  9. HERBALS\TURMERIC [Concomitant]
     Active Substance: HERBALS\TURMERIC
     Indication: Product used for unknown indication

REACTIONS (5)
  - Drug ineffective [Recovered/Resolved]
  - Osteonecrosis of jaw [Unknown]
  - Gastroenteritis clostridial [Unknown]
  - Diarrhoea [Unknown]
  - Hallucination, visual [Unknown]
